FAERS Safety Report 6248583-3 (Version None)
Quarter: 2009Q2

REPORT INFORMATION
  Report Type: 
  Country: None (occurrence: None)
  Receive Date: 20090624
  Receipt Date: 20090624
  Transmission Date: 20091009
  Serious: Yes (Life-Threatening)
  Sender: FDA-Public Use
  Company Number: None

PATIENT
  Age: 50 Year
  Sex: Female

DRUGS (6)
  1. LEUKINE [Suspect]
     Indication: ACUTE MYELOID LEUKAEMIA
     Dosage: 500 MCG SQ X 1
     Route: 058
     Dates: start: 20090217
  2. DEXAMETHASONE [Concomitant]
  3. M.V.I. [Concomitant]
  4. CALCIUM [Concomitant]
  5. LEVOTHYROXINE SODIUM [Concomitant]
  6. PROCHLORPERAZINE [Concomitant]

REACTIONS (3)
  - DYSPNOEA [None]
  - NAUSEA [None]
  - RASH GENERALISED [None]
